FAERS Safety Report 6828762-4 (Version None)
Quarter: 2010Q3

REPORT INFORMATION
  Report Type: 
  Country: None (occurrence: None)
  Receive Date: 20100709
  Receipt Date: 20070219
  Transmission Date: 20110219
  Serious: No
  Sender: FDA-Public Use
  Company Number: US-PFIZER INC-2007014182

PATIENT
  Sex: Female
  Weight: 47.63 kg

DRUGS (5)
  1. CHANTIX [Suspect]
     Indication: SMOKING CESSATION THERAPY
     Dates: start: 20070131
  2. WELLBUTRIN [Concomitant]
  3. PRILOSEC [Concomitant]
  4. DUONEB [Concomitant]
     Route: 055
  5. COMBIVENT [Concomitant]
     Route: 055

REACTIONS (4)
  - DECREASED APPETITE [None]
  - DRUG ADMINISTRATION ERROR [None]
  - NAUSEA [None]
  - PAIN IN EXTREMITY [None]
